FAERS Safety Report 9559806 (Version 1)
Quarter: 2013Q3

REPORT INFORMATION
  Report Type: Spontaneous
  Country: ES (occurrence: ES)
  Receive Date: 20130927
  Receipt Date: 20130927
  Transmission Date: 20140515
  Serious: Yes (Other)
  Sender: FDA-Public Use
  Company Number: ES-PFIZER INC-2013276417

PATIENT
  Age: 84 Year
  Sex: Male

DRUGS (10)
  1. FARMIBLASTINA [Suspect]
     Indication: HODGKIN^S DISEASE
     Dosage: UNK MG, CYCLIC
     Route: 042
     Dates: start: 20130426, end: 20130726
  2. VINBLASTINE [Concomitant]
     Indication: HODGKIN^S DISEASE
     Dosage: UNK
     Route: 042
     Dates: start: 20130426, end: 20130711
  3. BLEOMICINA MYLAN [Concomitant]
     Indication: HODGKIN^S DISEASE
     Dosage: UNK
     Route: 042
     Dates: start: 20130426, end: 20130726
  4. DACARBAZINA MEDAC [Concomitant]
     Indication: HODGKIN^S DISEASE
     Dosage: UNK
     Route: 042
     Dates: start: 20130426, end: 20130726
  5. EPREX [Concomitant]
     Dosage: 10 IU, WEEKLY
     Route: 058
     Dates: start: 20130426
  6. HIDROXIL B12 B6 B1 [Concomitant]
     Dosage: 1 DF, 1X/DAY
     Route: 048
     Dates: start: 20130426
  7. TROMALYT [Concomitant]
     Dosage: 190 MG, 1X/DAY
     Route: 048
  8. ZARZIO [Concomitant]
     Dosage: UNK
     Route: 058
     Dates: start: 20130426
  9. ZOVIRAX [Concomitant]
     Dosage: 400 MG, 2X/DAY
     Route: 048
     Dates: start: 20130426
  10. ZYLORIC [Concomitant]
     Dosage: 300 MG, CYCLIC
     Route: 048
     Dates: start: 20130426

REACTIONS (1)
  - Skin hyperpigmentation [Unknown]
